FAERS Safety Report 8742923 (Version 2)
Quarter: 2012Q4

REPORT INFORMATION
  Report Type: 
  Country: US (occurrence: US)
  Receive Date: 20120824
  Receipt Date: 20121022
  Transmission Date: 20130627
  Serious: Yes (Hospitalization, Other)
  Sender: FDA-Public Use
  Company Number: US-ELI_LILLY_AND_COMPANY-US201208005005

PATIENT
  Age: 50 Year
  Sex: Female

DRUGS (9)
  1. CYMBALTA [Suspect]
     Indication: DEPRESSION
     Dosage: 90 mg, qd
  2. LEXAPRO [Concomitant]
  3. SYNTHROID [Concomitant]
  4. CLONAZEPAM [Concomitant]
  5. NEURONTIN [Concomitant]
  6. MULTI-VIT [Concomitant]
  7. VITAMIN D [Concomitant]
  8. LONOX [Concomitant]
  9. LORTAB [Concomitant]

REACTIONS (2)
  - Intestinal obstruction [Recovered/Resolved with Sequelae]
  - Short-bowel syndrome [Not Recovered/Not Resolved]
